FAERS Safety Report 12413785 (Version 1)
Quarter: 2016Q2

REPORT INFORMATION
  Report Type: Spontaneous
  Country: US (occurrence: US)
  Receive Date: 20160527
  Receipt Date: 20160527
  Transmission Date: 20160815
  Serious: Yes (Other)
  Sender: FDA-Public Use
  Company Number: US-PFIZER INC-2016264373

PATIENT
  Age: 58 Year
  Sex: Female
  Weight: 88.45 kg

DRUGS (4)
  1. LYRICA [Suspect]
     Active Substance: PREGABALIN
     Indication: BACK PAIN
     Dosage: 300 MG, 2X/DAY
  2. LYRICA [Suspect]
     Active Substance: PREGABALIN
     Indication: NEURALGIA
     Dosage: 150 MG, 2X/DAY
     Dates: start: 2016, end: 201604
  3. FUROSEMIDE. [Suspect]
     Active Substance: FUROSEMIDE
  4. LISINOPRIL. [Concomitant]
     Active Substance: LISINOPRIL
     Indication: BLOOD PRESSURE ABNORMAL
     Dosage: 10 MG, 1X/DAY

REACTIONS (15)
  - Blister [Unknown]
  - Drug withdrawal syndrome [Not Recovered/Not Resolved]
  - Scab [Recovering/Resolving]
  - Diarrhoea [Not Recovered/Not Resolved]
  - Acarodermatitis [Unknown]
  - Asthenia [Not Recovered/Not Resolved]
  - Skin discolouration [Unknown]
  - Feeding disorder [Not Recovered/Not Resolved]
  - Feeling abnormal [Unknown]
  - Formication [Unknown]
  - Depression [Not Recovered/Not Resolved]
  - Gait disturbance [Not Recovered/Not Resolved]
  - Dysstasia [Not Recovered/Not Resolved]
  - Scar [Not Recovered/Not Resolved]
  - Rash [Unknown]

NARRATIVE: CASE EVENT DATE: 201601
